FAERS Safety Report 14999573 (Version 1)
Quarter: 2018Q2

REPORT INFORMATION
  Report Type: Spontaneous
  Country: IR (occurrence: IR)
  Receive Date: 20180522
  Receipt Date: 20180522
  Transmission Date: 20180711
  Serious: Yes (Life-Threatening, Disabling)
  Sender: FDA-Public Use
  Company Number: None

PATIENT
  Age: 23 Year
  Sex: Female
  Weight: 57 kg

DRUGS (1)
  1. AZITHROMAYSIN [Suspect]
     Active Substance: AZITHROMYCIN
     Indication: NASOPHARYNGITIS
     Dosage: ?          QUANTITY:1 CAPSULE(S);?
     Route: 048
     Dates: start: 20131015, end: 20131019

REACTIONS (4)
  - Heart rate irregular [None]
  - Palpitations [None]
  - Angina pectoris [None]
  - Cardiac valve disease [None]

NARRATIVE: CASE EVENT DATE: 20131019
